FAERS Safety Report 5674498-5 (Version None)
Quarter: 2008Q1

REPORT INFORMATION
  Report Type: 
  Country: None (occurrence: None)
  Receive Date: 20080320
  Receipt Date: 20080313
  Transmission Date: 20080703
  Serious: Yes (Other)
  Sender: FDA-Public Use
  Company Number: US-ABBOTT-08P-163-0441886-00

PATIENT
  Age: 9 Month
  Sex: Female

DRUGS (3)
  1. VALPROIC ACID [Suspect]
     Indication: CONVULSION PROPHYLAXIS
     Route: 065
  2. VALPROIC ACID [Suspect]
  3. VALPROIC ACID [Suspect]

REACTIONS (4)
  - BONE MARROW FAILURE [None]
  - HYPOPLASTIC ANAEMIA [None]
  - NO THERAPEUTIC RESPONSE [None]
  - THROMBOCYTOPENIA [None]
